FAERS Safety Report 6967706-1 (Version None)
Quarter: 2010Q3

REPORT INFORMATION
  Report Type: 
  Country: None (occurrence: None)
  Receive Date: 20100907
  Receipt Date: 20100826
  Transmission Date: 20110219
  Serious: No
  Sender: FDA-Public Use
  Company Number: US-PFIZER INC-2010108307

PATIENT
  Sex: Female

DRUGS (1)
  1. CHANTIX [Suspect]
     Dosage: UNK

REACTIONS (4)
  - ANXIETY [None]
  - FEELING ABNORMAL [None]
  - LETHARGY [None]
  - MALAISE [None]
